FAERS Safety Report 8561318-4 (Version None)
Quarter: 2012Q3

REPORT INFORMATION
  Report Type: 
  Country: None (occurrence: None)
  Receive Date: 20120727
  Receipt Date: 20120727
  Transmission Date: 20120928
  Serious: Yes (Hospitalization)
  Sender: FDA-Public Use
  Company Number: None

PATIENT
  Age: 81 Year
  Sex: Female
  Weight: 68.5 kg

DRUGS (3)
  1. FUROSEMIDE [Concomitant]
  2. METHOTREXATE [Concomitant]
  3. ACEBUTOLOL [Suspect]
     Indication: PALPITATIONS
     Dosage: 200 MG BID, PO
     Route: 048

REACTIONS (7)
  - RENAL FAILURE ACUTE [None]
  - ATRIAL FIBRILLATION [None]
  - HYPOPHAGIA [None]
  - NAUSEA [None]
  - ASTHENIA [None]
  - FATIGUE [None]
  - BRADYCARDIA [None]
